FAERS Safety Report 20988276 (Version 1)
Quarter: 2022Q2

REPORT INFORMATION
  Report Type: Spontaneous
  Country: CA (occurrence: CA)
  Receive Date: 20220621
  Receipt Date: 20220621
  Transmission Date: 20220720
  Serious: Yes (Hospitalization)
  Sender: FDA-Public Use
  Company Number: CA-ELI_LILLY_AND_COMPANY-CA202206007209

PATIENT
  Age: 26 Year
  Sex: Female

DRUGS (2)
  1. OLANZAPINE [Suspect]
     Active Substance: OLANZAPINE
     Indication: Product used for unknown indication
     Dosage: UNK, UNKNOWN
     Route: 065
  2. LITHIUM [Suspect]
     Active Substance: LITHIUM
     Indication: Product used for unknown indication
     Dosage: UNK, UNKNOWN
     Route: 065

REACTIONS (2)
  - Psychotic disorder [Unknown]
  - Treatment noncompliance [Unknown]
